FAERS Safety Report 8854486 (Version 3)
Quarter: 2012Q4

REPORT INFORMATION
  Report Type: 
  Country: JP (occurrence: JP)
  Receive Date: 20121023
  Receipt Date: 20121108
  Transmission Date: 20130627
  Serious: Yes (Other)
  Sender: FDA-Public Use
  Company Number: JP-PFIZER INC-2012264212

PATIENT
  Age: 50 Year
  Sex: Male

DRUGS (3)
  1. LYRICA [Suspect]
     Indication: DIABETIC NEUROPATHY
     Dosage: UNK
     Route: 048
     Dates: start: 201208, end: 20120919
  2. LYRICA [Suspect]
     Dosage: 25 mg, 1x/day
     Route: 048
     Dates: start: 20120920, end: 20121019
  3. CRESTOR [Suspect]
     Indication: HYPERCHOLESTEROLAEMIA
     Dosage: 2.5 mg, daily
     Route: 048

REACTIONS (5)
  - Nephrotic syndrome [Not Recovered/Not Resolved]
  - Face oedema [Recovered/Resolved]
  - Weight increased [Recovered/Resolved]
  - Listless [Recovered/Resolved]
  - Blood creatine phosphokinase increased [Recovered/Resolved]
